FAERS Safety Report 21476764 (Version 1)
Quarter: 2022Q4

REPORT INFORMATION
  Report Type: Spontaneous
  Country: US (occurrence: US)
  Receive Date: 20221019
  Receipt Date: 20221019
  Transmission Date: 20230113
  Serious: No
  Sender: FDA-Public Use
  Company Number: US-CELLTRION INC.-2021US017890

PATIENT

DRUGS (4)
  1. INFLECTRA [Suspect]
     Active Substance: INFLIXIMAB-DYYB
     Indication: Colitis ulcerative
     Dosage: EVERY 8 WEEKS (STOP DATES: 15 OCT 2021 - 9 MONTHS AND 21 NOV 2021)
     Route: 042
     Dates: start: 20210122, end: 20211121
  2. LIALDA [Concomitant]
     Active Substance: MESALAMINE
     Dosage: UNK
  3. TRIAMTERENE [Concomitant]
     Active Substance: TRIAMTERENE
     Dosage: UNK
  4. COVID-19 VACCINE [Concomitant]
     Dosage: 3 SHOTS

REACTIONS (4)
  - Trismus [Recovered/Resolved]
  - Arthralgia [Recovered/Resolved]
  - Adverse drug reaction [Recovered/Resolved]
  - Drug specific antibody present [Recovered/Resolved]

NARRATIVE: CASE EVENT DATE: 20210305
